FAERS Safety Report 21008676 (Version 1)
Quarter: 2022Q2

REPORT INFORMATION
  Report Type: Spontaneous
  Country: FR (occurrence: FR)
  Receive Date: 20220627
  Receipt Date: 20220627
  Transmission Date: 20220721
  Serious: Yes (Hospitalization, Other)
  Sender: FDA-Public Use
  Company Number: None

PATIENT
  Age: 91 Year
  Sex: Female

DRUGS (4)
  1. POTASSIUM CHLORIDE [Suspect]
     Active Substance: POTASSIUM CHLORIDE
     Indication: Prescription drug used without a prescription
     Dosage: 1 DF, TOTAL
     Route: 048
     Dates: start: 20220213, end: 20220213
  2. METHOTREXATE [Suspect]
     Active Substance: METHOTREXATE
     Indication: Prescription drug used without a prescription
     Dosage: 1 DF, QD
     Route: 048
     Dates: start: 20220213, end: 20220213
  3. ATENOLOL [Suspect]
     Active Substance: ATENOLOL
     Indication: Prescription drug used without a prescription
     Dosage: 1 DF, QD
     Route: 048
     Dates: start: 20220213, end: 20220213
  4. HYDROCHLOROTHIAZIDE\IRBESARTAN [Suspect]
     Active Substance: HYDROCHLOROTHIAZIDE\IRBESARTAN
     Indication: Prescription drug used without a prescription
     Dosage: 1 DF, TOTAL
     Route: 048
     Dates: start: 20220213, end: 20220213

REACTIONS (2)
  - Bradycardia [Recovered/Resolved]
  - Wrong product administered [Unknown]
